FAERS Safety Report 15533920 (Version 2)
Quarter: 2018Q4

REPORT INFORMATION
  Report Type: Spontaneous
  Country: JP (occurrence: JP)
  Receive Date: 20181019
  Receipt Date: 20181126
  Transmission Date: 20190205
  Serious: Yes (Other)
  Sender: FDA-Public Use
  Company Number: JP-PFIZER INC-2018414202

PATIENT
  Age: 85 Year
  Sex: Female
  Weight: 53 kg

DRUGS (11)
  1. CYMBALTA [Concomitant]
     Active Substance: DULOXETINE HYDROCHLORIDE
     Indication: SPINAL COLUMN STENOSIS
     Dosage: 40 MG, 1X/DAY
     Route: 048
     Dates: start: 20180817, end: 20180821
  2. TRAMCET [Concomitant]
     Active Substance: ACETAMINOPHEN\TRAMADOL
     Indication: SPINAL COLUMN STENOSIS
     Dosage: 2 DF, 2X/DAY
     Route: 048
  3. MAGNESIUM OXIDE. [Concomitant]
     Active Substance: MAGNESIUM OXIDE
     Indication: CONSTIPATION
     Dosage: 330 MG, 3X/DAY
     Route: 048
  4. ETODOLAC. [Concomitant]
     Active Substance: ETODOLAC
     Indication: PROCEDURAL PAIN
     Dosage: 200 MG, 2X/DAY
     Route: 048
     Dates: start: 20180806, end: 20180821
  5. TAKECAB [Concomitant]
     Active Substance: VONOPRAZAN FUMURATE
     Indication: GASTROINTESTINAL DISORDER PROPHYLAXIS
     Dosage: 20 MG, 1X/DAY
     Route: 048
     Dates: start: 20180806, end: 20180907
  6. LYRICA [Suspect]
     Active Substance: PREGABALIN
     Indication: LUMBAR SPINAL STENOSIS
     Dosage: 150 MG, 2X/DAY
     Route: 048
     Dates: start: 20180817, end: 20180823
  7. ZOLPIDEM [Suspect]
     Active Substance: ZOLPIDEM\ZOLPIDEM TARTRATE
     Indication: INSOMNIA
     Dosage: 10 MG, 1X/DAY
     Route: 048
     Dates: end: 20180823
  8. TELMISARTAN. [Concomitant]
     Active Substance: TELMISARTAN
     Indication: HYPERTENSION
     Dosage: 40 MG, 1X/DAY
     Route: 048
  9. LYRICA [Suspect]
     Active Substance: PREGABALIN
     Indication: SPINAL COLUMN STENOSIS
  10. LIPOZART [Concomitant]
     Indication: DYSLIPIDAEMIA
     Dosage: 5 MG, 1X/DAY
     Route: 048
  11. MIYA-BM [Concomitant]
     Active Substance: CLOSTRIDIUM BUTYRICUM SPORES STRAIN M-55
     Indication: GASTROINTESTINAL DISORDER
     Dosage: 1 G, 3X/DAY
     Route: 048
     Dates: start: 20180806, end: 20180907

REACTIONS (9)
  - Dizziness [Recovered/Resolved]
  - Anaemia [Unknown]
  - Metabolic encephalopathy [Recovered/Resolved]
  - Fall [Unknown]
  - Renal impairment [Unknown]
  - Myoclonus [Recovered/Resolved]
  - Cold sweat [Unknown]
  - Gait disturbance [Unknown]
  - Asthenia [Unknown]

NARRATIVE: CASE EVENT DATE: 20180819
